FAERS Safety Report 18316224 (Version 1)
Quarter: 2020Q3

REPORT INFORMATION
  Report Type: Report from Study
  Country: MY (occurrence: MY)
  Receive Date: 20200927
  Receipt Date: 20200927
  Transmission Date: 20201103
  Serious: Yes (Death)
  Sender: FDA-Public Use
  Company Number: MY-ASTRAZENECA-2020SF23549

PATIENT
  Age: 27080 Day
  Sex: Female

DRUGS (1)
  1. IRESSA [Suspect]
     Active Substance: GEFITINIB
     Indication: NON-SMALL CELL LUNG CANCER
     Dosage: 250.0MG UNKNOWN
     Route: 048
     Dates: start: 20180327

REACTIONS (4)
  - Onychoclasis [Unknown]
  - Alopecia [Unknown]
  - Mouth ulceration [Unknown]
  - Death [Fatal]

NARRATIVE: CASE EVENT DATE: 20200914
